FAERS Safety Report 8329250 (Version 2)
Quarter: 2013Q2

REPORT INFORMATION
  Report Type: Spontaneous
  Country: US (occurrence: US)
  Receive Date: 20120110
  Receipt Date: 20130510
  Transmission Date: 20140414
  Serious: No
  Sender: FDA-Public Use
  Company Number: US-PFIZER INC-2012004353

PATIENT
  Age: 70 Year
  Sex: Female
  Weight: 65.8 kg

DRUGS (3)
  1. PREMARIN [Suspect]
     Indication: SMEAR CERVIX ABNORMAL
     Dosage: 0.05 MG, 2X/WEEK
     Route: 067
     Dates: start: 2000, end: 20111101
  2. ESTRADIOL [Suspect]
     Indication: MOOD SWINGS
     Dosage: 0.5 MG, 1X/DAY (DAILY)
     Dates: start: 201104, end: 20110915
  3. ESTRADIOL [Suspect]
     Indication: PROPHYLAXIS

REACTIONS (5)
  - Contact lens intolerance [Unknown]
  - Dry eye [Unknown]
  - Eye irritation [Unknown]
  - Alopecia [Unknown]
  - Drug ineffective [Unknown]
